FAERS Safety Report 20738349 (Version 1)
Quarter: 2022Q2

REPORT INFORMATION
  Report Type: Spontaneous
  Country: GB (occurrence: GB)
  Receive Date: 20220422
  Receipt Date: 20220422
  Transmission Date: 20220721
  Serious: Yes (Other)
  Sender: FDA-Public Use
  Company Number: GB-OTSUKA-2022_022523

PATIENT
  Sex: Male

DRUGS (4)
  1. ARIPIPRAZOLE [Suspect]
     Active Substance: ARIPIPRAZOLE
     Indication: Product used for unknown indication
     Dosage: UNIT DOSE : 10 MG
     Route: 065
  2. VORTIOXETINE [Concomitant]
     Active Substance: VORTIOXETINE
     Indication: Product used for unknown indication
     Dosage: UNIT DOSE : 15 MG
     Route: 065
  3. VORTIOXETINE [Concomitant]
     Active Substance: VORTIOXETINE
     Dosage: UNIT DOSE: 10 MG
     Route: 065
  4. VORTIOXETINE [Concomitant]
     Active Substance: VORTIOXETINE
     Dosage: UNIT DOSE: 10 MG
     Route: 065

REACTIONS (2)
  - Tachycardia [Recovered/Resolved]
  - Blood pressure abnormal [Recovered/Resolved]
